FAERS Safety Report 6413980-X (Version None)
Quarter: 2009Q4

REPORT INFORMATION
  Report Type: 
  Country: None (occurrence: None)
  Receive Date: 20091026
  Receipt Date: 20091016
  Transmission Date: 20100525
  Serious: Yes (Hospitalization)
  Sender: FDA-Public Use
  Company Number: US-ASTRAZENECA-2009SE20704

PATIENT
  Age: 58 Year
  Sex: Male
  Weight: 81.6 kg

DRUGS (4)
  1. SYMBICORT [Suspect]
     Route: 055
  2. SALBUTAMOL SULFATE INHALATION [Suspect]
     Dosage: 2 PUFFS (90 MCG)
     Route: 055
     Dates: start: 20091006
  3. IBUPROFEN [Suspect]
     Route: 065
  4. MOMETASONE FUROATE [Concomitant]

REACTIONS (4)
  - CHEST DISCOMFORT [None]
  - DRUG INEFFECTIVE [None]
  - DYSPNOEA [None]
  - FEELING ABNORMAL [None]
